FAERS Safety Report 25901336 (Version 2)
Quarter: 2025Q4

REPORT INFORMATION
  Report Type: Spontaneous
  Country: EU (occurrence: EU)
  Receive Date: 20251009
  Receipt Date: 20251024
  Transmission Date: 20260117
  Serious: Yes (Other)
  Sender: TEVA
  Company Number: EU-TEVA-VS-3378587

PATIENT
  Age: 42 Year
  Sex: Female

DRUGS (15)
  1. CYCLOSPORINE [Suspect]
     Active Substance: CYCLOSPORINE
     Indication: Systemic lupus erythematosus
     Dosage: CYCLOSPORINE A 2?50MG
     Route: 065
     Dates: start: 202006, end: 202208
  2. CYCLOSPORINE [Suspect]
     Active Substance: CYCLOSPORINE
     Indication: Systemic lupus erythematosus
     Dosage: 2?50MG
     Route: 065
     Dates: end: 202303
  3. TECLISTAMAB [Suspect]
     Active Substance: TECLISTAMAB
     Indication: Systemic lupus erythematosus
     Dosage: ON DAYS 8, 15, AND 22
     Route: 058
     Dates: start: 202403, end: 20240402
  4. TECLISTAMAB [Suspect]
     Active Substance: TECLISTAMAB
     Indication: Systemic lupus erythematosus
     Dosage: ON DAY 1
     Route: 058
     Dates: start: 20240312, end: 202403
  5. TECLISTAMAB [Suspect]
     Active Substance: TECLISTAMAB
     Indication: Systemic lupus erythematosus
     Dosage: ON DAY 4
     Route: 058
     Dates: start: 202403, end: 202403
  6. HYDROXYCHLOROQUINE [Suspect]
     Active Substance: HYDROXYCHLOROQUINE
     Indication: Systemic lupus erythematosus
     Dosage: 1-2 TIMES PER DAY
     Route: 065
     Dates: start: 202006, end: 202208
  7. HYDROXYCHLOROQUINE [Suspect]
     Active Substance: HYDROXYCHLOROQUINE
     Indication: Systemic lupus erythematosus
     Route: 065
  8. BELIMUMAB [Suspect]
     Active Substance: BELIMUMAB
     Indication: Systemic lupus erythematosus
     Route: 065
     Dates: start: 202006, end: 202208
  9. RITUXIMAB [Suspect]
     Active Substance: RITUXIMAB
     Indication: Systemic lupus erythematosus
     Dosage: 2?1G
     Route: 065
     Dates: start: 202303, end: 2023
  10. RITUXIMAB [Suspect]
     Active Substance: RITUXIMAB
     Indication: Systemic lupus erythematosus
     Dosage: 2?1G
     Route: 065
     Dates: start: 202310
  11. PREDNISONE [Suspect]
     Active Substance: PREDNISONE
     Indication: Systemic lupus erythematosus
     Route: 065
     Dates: end: 20231201
  12. PREDNISONE [Suspect]
     Active Substance: PREDNISONE
     Indication: Systemic lupus erythematosus
     Route: 065
     Dates: start: 202006, end: 202208
  13. AZATHIOPRINE [Suspect]
     Active Substance: AZATHIOPRINE
     Indication: Systemic lupus erythematosus
     Dosage: 2?50MG
     Route: 065
     Dates: start: 202006, end: 202208
  14. AZATHIOPRINE [Suspect]
     Active Substance: AZATHIOPRINE
     Indication: Systemic lupus erythematosus
     Dosage: 2?50MG
     Route: 065
     Dates: end: 20231201
  15. ANIFROLUMAB [Suspect]
     Active Substance: ANIFROLUMAB
     Indication: Systemic lupus erythematosus
     Route: 065
     Dates: start: 202208, end: 202303

REACTIONS (3)
  - Cytokine release syndrome [Unknown]
  - Inflammatory bowel disease [Recovered/Resolved]
  - Drug ineffective [Unknown]

NARRATIVE: CASE EVENT DATE: 20240101
